FAERS Safety Report 17156575 (Version 6)
Quarter: 2020Q3

REPORT INFORMATION
  Report Type: Report from Study
  Country: CH (occurrence: CH)
  Receive Date: 20191216
  Receipt Date: 20200723
  Transmission Date: 20201102
  Serious: Yes (Hospitalization)
  Sender: FDA-Public Use
  Company Number: CH-ROCHE-2495071

PATIENT
  Age: 63 Year

DRUGS (4)
  1. METRONIDAZOLE. [Concomitant]
     Active Substance: METRONIDAZOLE
     Dates: start: 20191202, end: 20191205
  2. VENETOCLAX. [Suspect]
     Active Substance: VENETOCLAX
     Indication: B-CELL LYMPHOMA
     Dosage: LAST DOSE PRIOR TO THE EVENT: 08/SEP/2018 (800 MG)?ONCE DAILY ACCORDING TO DOSE LEVEL (DL) OR MTD
     Route: 048
     Dates: start: 20180227
  3. CIPROFLOXACIN. [Concomitant]
     Active Substance: CIPROFLOXACIN
     Dates: start: 20191202, end: 20191205
  4. OBINUTUZUMAB. [Suspect]
     Active Substance: OBINUTUZUMAB
     Indication: B-CELL LYMPHOMA
     Dosage: MOST RECENT DOSE OF OBINUTUZUMAB: 31/OCT/2019
     Route: 042
     Dates: start: 20180226

REACTIONS (2)
  - Diverticulitis [Recovered/Resolved with Sequelae]
  - Colostomy closure [Recovered/Resolved]

NARRATIVE: CASE EVENT DATE: 20191205
